FAERS Safety Report 14198720 (Version 1)
Quarter: 2017Q4

REPORT INFORMATION
  Report Type: Spontaneous
  Country: US (occurrence: US)
  Receive Date: 20171117
  Receipt Date: 20171117
  Transmission Date: 20180321
  Serious: No
  Sender: FDA-Public Use
  Company Number: US-PFIZER INC-2017491909

PATIENT
  Age: 56 Year
  Sex: Female
  Weight: 113 kg

DRUGS (4)
  1. LYRICA [Suspect]
     Active Substance: PREGABALIN
     Indication: ARTHRALGIA
     Dosage: 75 MG, 2X/DAY MORNING AND ONE IN THE EVENING
     Route: 048
     Dates: start: 201710, end: 20171107
  2. LYRICA [Suspect]
     Active Substance: PREGABALIN
     Indication: MUSCULOSKELETAL PAIN
  3. MELOXICAM. [Concomitant]
     Active Substance: MELOXICAM
     Indication: PAIN
     Dosage: UNK
  4. GLUCOSAMINE [Concomitant]
     Active Substance: GLUCOSAMINE
     Indication: PAIN
     Dosage: 3000 MG, 1X/DAY; TWO 1500S; HUGE CAPSULES BY MOUTH ONCE PER DAY
     Route: 048

REACTIONS (4)
  - Product use in unapproved indication [Unknown]
  - Musculoskeletal pain [Not Recovered/Not Resolved]
  - Condition aggravated [Not Recovered/Not Resolved]
  - Arthralgia [Not Recovered/Not Resolved]

NARRATIVE: CASE EVENT DATE: 20171107
